FAERS Safety Report 24134277 (Version 1)
Quarter: 2024Q3

REPORT INFORMATION
  Report Type: Report from Study
  Country: US (occurrence: US)
  Receive Date: 20240725
  Receipt Date: 20240725
  Transmission Date: 20241017
  Serious: Yes (Other)
  Sender: ABBVIE
  Company Number: US-ABBVIE-5341762

PATIENT
  Sex: Female

DRUGS (1)
  1. UBRELVY [Suspect]
     Active Substance: UBROGEPANT
     Indication: Migraine
     Dosage: 1 TABLET ON ONSET OF HEADACHE?FORM STRENGTH: 50 MILLIGRAM
     Route: 048

REACTIONS (3)
  - Brain operation [Unknown]
  - Headache [Unknown]
  - Nausea [Unknown]
